FAERS Safety Report 9253812 (Version 1)
Quarter: 2013Q2

REPORT INFORMATION
  Report Type: Spontaneous
  Country: US (occurrence: None)
  Receive Date: 20130422
  Receipt Date: 20130422
  Transmission Date: 20140414
  Serious: Yes (Life-Threatening, Hospitalization)
  Sender: FDA-Public Use
  Company Number: None

PATIENT
  Age: 61 Year
  Sex: Female
  Weight: 78.5 kg

DRUGS (2)
  1. THYMOGLOBULIN [Suspect]
     Indication: RENAL TRANSPLANT
     Dosage: 1 DOSE
     Route: 042
     Dates: start: 20130417, end: 20130417
  2. METHYLPREDNISOLONE [Concomitant]

REACTIONS (3)
  - Hypotension [None]
  - Lactic acidosis [None]
  - Disseminated intravascular coagulation [None]
